FAERS Safety Report 8306080-5 (Version None)
Quarter: 2012Q2

REPORT INFORMATION
  Report Type: 
  Country: None (occurrence: None)
  Receive Date: 20120423
  Receipt Date: 20120418
  Transmission Date: 20120825
  Serious: Yes (Other)
  Sender: FDA-Public Use
  Company Number: US-BAYER-2012-038476

PATIENT
  Sex: Female

DRUGS (2)
  1. SLEEPING PILLS [Concomitant]
  2. ALEVE (CAPLET) [Suspect]
     Dosage: 3 U, UNK
     Route: 048

REACTIONS (2)
  - SUICIDE ATTEMPT [None]
  - MEDICATION RESIDUE [None]
